FAERS Safety Report 26115244 (Version 3)
Quarter: 2025Q4

REPORT INFORMATION
  Report Type: Spontaneous
  Country: US (occurrence: US)
  Receive Date: 20251203
  Receipt Date: 20251218
  Transmission Date: 20260118
  Serious: Yes (Other)
  Sender: AMGEN
  Company Number: US-AMGEN-USASP2025237907

PATIENT
  Age: 67 Year
  Sex: Female

DRUGS (1)
  1. AIMOVIG [Suspect]
     Active Substance: ERENUMAB-AOOE
     Indication: Product used for unknown indication
     Dosage: 140 MILLIGRAM, Q4WK
     Route: 065
     Dates: start: 2019

REACTIONS (4)
  - Drug dependence [Unknown]
  - Migraine with aura [Unknown]
  - Device difficult to use [Unknown]
  - Headache [Unknown]

NARRATIVE: CASE EVENT DATE: 20251128
